FAERS Safety Report 8066704-7 (Version None)
Quarter: 2012Q1

REPORT INFORMATION
  Report Type: 
  Country: None (occurrence: None)
  Receive Date: 20120124
  Receipt Date: 20120112
  Transmission Date: 20120608
  Serious: Yes (Hospitalization)
  Sender: FDA-Public Use
  Company Number: US-ELI_LILLY_AND_COMPANY-US201201004637

PATIENT
  Age: 50 Year
  Sex: Female

DRUGS (2)
  1. ALIMTA [Suspect]
     Dosage: 500 MG/M2, UNK
  2. AVASTIN [Concomitant]
     Dosage: 15 MG/M2, UNK

REACTIONS (2)
  - PULMONARY HYPERTENSION [None]
  - RIGHT VENTRICULAR FAILURE [None]
